FAERS Safety Report 6140118-9 (Version None)
Quarter: 2009Q1

REPORT INFORMATION
  Report Type: 
  Country: None (occurrence: None)
  Receive Date: 20090324
  Receipt Date: 20090318
  Transmission Date: 20090719
  Serious: Yes (Other)
  Sender: FDA-Public Use
  Company Number: MSTR-NO-0807S-0046

PATIENT
  Age: 78 Year
  Sex: Male
  Weight: 48 kg

DRUGS (1)
  1. METASTRON [Suspect]
     Indication: METASTASES TO BONE
     Dosage: SINGLE DOSE, I.V.
     Route: 042
     Dates: start: 20080624, end: 20080624

REACTIONS (3)
  - CONDITION AGGRAVATED [None]
  - DIARRHOEA [None]
  - PNEUMONIA [None]
